FAERS Safety Report 6559010-0 (Version None)
Quarter: 2010Q1

REPORT INFORMATION
  Report Type: 
  Country: None (occurrence: None)
  Receive Date: 20100129
  Receipt Date: 20100125
  Transmission Date: 20100710
  Serious: Yes (Other)
  Sender: FDA-Public Use
  Company Number: US-ELI_LILLY_AND_COMPANY-US200809002341

PATIENT
  Sex: Female
  Weight: 90.703 kg

DRUGS (11)
  1. BYETTA [Suspect]
     Indication: TYPE 2 DIABETES MELLITUS
     Dosage: 5 UG, 2/D
     Route: 058
     Dates: start: 20060725, end: 20061103
  2. BYETTA [Suspect]
     Dosage: 10 UG, 2/D
     Route: 058
     Dates: start: 20061103, end: 20070215
  3. LANTUS [Concomitant]
     Indication: DIABETES MELLITUS
     Dosage: UNK, 3/D
     Route: 058
     Dates: start: 20070716
  4. NOVOLOG [Concomitant]
     Indication: DIABETES MELLITUS
     Dosage: UNK, DAILY (1/D)
     Route: 058
     Dates: start: 20070612
  5. SYNTHROID [Concomitant]
     Indication: HYPOTHYROIDISM
     Dosage: 0.112 MG, DAILY (1/D)
     Route: 048
     Dates: start: 20030620
  6. METFORMIN [Concomitant]
     Indication: INSULIN RESISTANCE
     Dosage: 500 UNK, 2/D
     Route: 048
     Dates: start: 20010327, end: 20060809
  7. ULTRAM [Concomitant]
  8. PRANDIN [Concomitant]
     Indication: DIABETES MELLITUS
     Dosage: UNK, 3/D
     Route: 048
     Dates: start: 20020722, end: 20070612
  9. PIOGLITAZONE [Concomitant]
     Indication: DIABETES MELLITUS
     Dosage: 30 MG, DAILY (1/D)
     Route: 048
     Dates: start: 20050316, end: 20060826
  10. MIDRIN [Concomitant]
     Dosage: UNK, AS NEEDED
     Route: 048
     Dates: start: 20060725, end: 20071025
  11. COLCHICINE [Concomitant]
     Dates: start: 20060725, end: 20060828

REACTIONS (2)
  - ANXIETY [None]
  - PANCREATITIS [None]
